FAERS Safety Report 22377583 (Version 1)
Quarter: 2023Q2

REPORT INFORMATION
  Report Type: Spontaneous
  Country: US (occurrence: US)
  Receive Date: 20230529
  Receipt Date: 20230529
  Transmission Date: 20230722
  Serious: No
  Sender: FDA-Public Use
  Company Number: ALC2022US004358

PATIENT
  Sex: Female

DRUGS (5)
  1. SIMBRINZA [Suspect]
     Active Substance: BRIMONIDINE TARTRATE\BRINZOLAMIDE
     Indication: Postoperative care
     Dosage: UNK UNK, BID
     Route: 047
  2. PREDNISOLONE ACETATE [Suspect]
     Active Substance: PREDNISOLONE ACETATE
     Indication: Product used for unknown indication
     Dosage: UNK
     Route: 047
  3. PROLENSA [Suspect]
     Active Substance: BROMFENAC SODIUM
     Indication: Product used for unknown indication
     Route: 047
  4. OFLOXACIN [Suspect]
     Active Substance: OFLOXACIN
     Indication: Product used for unknown indication
     Dosage: UNK
     Route: 047
  5. HYPROMELLOSE, UNSPECIFIED [Concomitant]
     Active Substance: HYPROMELLOSE, UNSPECIFIED
     Indication: Product used for unknown indication
     Dosage: UNK
     Route: 065

REACTIONS (2)
  - Eye irritation [Recovered/Resolved]
  - Dry eye [Recovered/Resolved]

NARRATIVE: CASE EVENT DATE: 20220914
